FAERS Safety Report 7268648-7 (Version None)
Quarter: 2011Q1

REPORT INFORMATION
  Report Type: 
  Country: None (occurrence: None)
  Receive Date: 20110201
  Receipt Date: 20110125
  Transmission Date: 20110831
  Serious: Yes (Other)
  Sender: FDA-Public Use
  Company Number: US-PURDUE-USA-2010-0061313

PATIENT
  Sex: Male
  Weight: 112.47 kg

DRUGS (9)
  1. LORTAB [Concomitant]
     Indication: ARTHRALGIA
  2. OXYCONTIN [Suspect]
     Indication: INTERVERTEBRAL DISC DISORDER
  3. OXYCONTIN [Suspect]
     Indication: ARTHRALGIA
     Dosage: 80 MG, Q12H
     Route: 048
  4. PHENERGAN HCL [Concomitant]
     Indication: NAUSEA
     Dosage: 50 MG, QID
     Route: 048
  5. DESYREL [Concomitant]
     Indication: INSOMNIA
     Dosage: 100 MG, HS
     Route: 048
  6. LORTAB [Concomitant]
     Indication: BACK PAIN
     Dosage: 10 MG, Q4- 6H
     Route: 048
  7. VALIUM [Concomitant]
     Indication: ANXIETY
     Dosage: 10 MG, Q8- 12H
     Route: 048
  8. BENICAR HCT [Concomitant]
     Indication: HYPERTENSION
     Dosage: 40/12.5 MG, QID
     Route: 048
  9. LORTAB [Concomitant]

REACTIONS (2)
  - HIP ARTHROPLASTY [None]
  - KNEE ARTHROPLASTY [None]
